FAERS Safety Report 10400281 (Version 2)
Quarter: 2014Q3

REPORT INFORMATION
  Report Type: Spontaneous
  Country: FR (occurrence: FR)
  Receive Date: 20140821
  Receipt Date: 20140821
  Transmission Date: 20150326
  Serious: Yes (Other)
  Sender: FDA-Public Use
  Company Number: FR-PFIZER INC-2014218528

PATIENT
  Sex: Female

DRUGS (1)
  1. LIPUR [Suspect]
     Active Substance: GEMFIBROZIL
     Dosage: UNK

REACTIONS (2)
  - Drug intolerance [Unknown]
  - Blindness [Unknown]
